FAERS Safety Report 9155524 (Version 2)
Quarter: 2013Q2

REPORT INFORMATION
  Report Type: Spontaneous
  Country: US (occurrence: US)
  Receive Date: 20130311
  Receipt Date: 20130419
  Transmission Date: 20140414
  Serious: Yes (Hospitalization)
  Sender: FDA-Public Use
  Company Number: US-GLAXOSMITHKLINE-A0879855A

PATIENT
  Age: 47 Year
  Sex: Male
  Weight: 81.3 kg

DRUGS (18)
  1. FLOLAN [Suspect]
     Indication: PULMONARY ARTERIAL HYPERTENSION
     Dosage: 57NGKM CONTINUOUS
     Route: 042
     Dates: start: 19991018
  2. FLOLAN DILUENT [Suspect]
     Indication: PULMONARY ARTERIAL HYPERTENSION
     Route: 042
  3. PREDNISONE [Suspect]
     Dosage: 10MG PER DAY
     Route: 048
  4. CALCIUM + D [Concomitant]
     Route: 048
  5. DIGOXIN [Concomitant]
     Dosage: 25MG PER DAY
     Route: 048
  6. FISH OIL [Concomitant]
     Dosage: 1000MG PER DAY
     Route: 048
  7. FLAXSEED OIL [Concomitant]
     Dosage: 1000MG PER DAY
     Route: 048
  8. FLEXERIL [Concomitant]
     Dosage: 10MG AT NIGHT
     Route: 048
  9. JANUVIA [Concomitant]
     Dosage: 50MG PER DAY
     Route: 048
  10. LASIX [Concomitant]
     Dosage: 20MG PER DAY
     Route: 048
  11. LEVEMIR [Concomitant]
     Route: 058
  12. METHOTREXATE [Concomitant]
     Dosage: 2.5MG THREE TIMES PER WEEK
     Route: 048
  13. MORPHINE SULFATE [Concomitant]
     Dosage: 50MG AS REQUIRED
     Route: 048
  14. NORCO [Concomitant]
     Dosage: 1TAB AS REQUIRED
     Route: 048
  15. OMEPRAZOLE [Concomitant]
     Dosage: 60MG AS REQUIRED
     Route: 048
  16. PLAQUENIL [Concomitant]
     Dosage: 200MG TWICE PER DAY
     Route: 048
  17. REVATIO [Concomitant]
     Dosage: 20MG THREE TIMES PER DAY
  18. SPIRONOLACTONE [Concomitant]
     Dosage: 50MG PER DAY
     Route: 048

REACTIONS (8)
  - Transfusion [Not Recovered/Not Resolved]
  - Pain in jaw [Unknown]
  - Myalgia [Unknown]
  - Bone pain [Unknown]
  - Alopecia [Unknown]
  - Haemoglobin decreased [Unknown]
  - Platelet count decreased [Unknown]
  - Dyspnoea [Unknown]
